FAERS Safety Report 20200534 (Version 1)
Quarter: 2021Q4

REPORT INFORMATION
  Report Type: Spontaneous
  Country: KR (occurrence: KR)
  Receive Date: 20211217
  Receipt Date: 20211217
  Transmission Date: 20220304
  Serious: Yes (Hospitalization)
  Sender: FDA-Public Use
  Company Number: KR-009507513-2112KOR005386

PATIENT
  Age: 68 Year
  Sex: Female
  Weight: 59.3 kg

DRUGS (2)
  1. PEMBROLIZUMAB [Suspect]
     Active Substance: PEMBROLIZUMAB
     Indication: Uterine cancer
     Dosage: TOTAL DAILY DOSE: 200 MG
     Route: 042
     Dates: start: 202108
  2. LENVATINIB MESYLATE [Suspect]
     Active Substance: LENVATINIB MESYLATE
     Indication: Uterine cancer
     Dosage: TOTAL DAILY DOSE: 10 MG
     Route: 048
     Dates: start: 202108

REACTIONS (2)
  - Urinary tract infection bacterial [Not Recovered/Not Resolved]
  - Drug interaction [Unknown]

NARRATIVE: CASE EVENT DATE: 20210101
